FAERS Safety Report 4506053-4 (Version None)
Quarter: 2004Q4

REPORT INFORMATION
  Report Type: 
  Country: None (occurrence: None)
  Receive Date: 20041025
  Receipt Date: 20040716
  Transmission Date: 20050328
  Serious: Yes (Hospitalization, Disabling, Other)
  Sender: FDA-Public Use
  Company Number: US-JNJFOC-20040503397

PATIENT
  Age: 44 Year
  Sex: Female

DRUGS (10)
  1. INFLIXIMAB (INFLIXIMAB, RECOMBINANT) LYOPHILIZED POWDER [Suspect]
     Indication: RHEUMATOID ARTHRITIS
     Dosage: 400 MG, INTRAVENOUS
     Route: 042
     Dates: start: 20021002
  2. ENBREL [Suspect]
     Indication: RHEUMATOID ARTHRITIS
  3. METHOTREXATE [Concomitant]
  4. PREDNISONE [Concomitant]
  5. LANSOPRAZOLE [Concomitant]
  6. OLANZAPINE [Concomitant]
  7. GABAPENTIN [Concomitant]
  8. VERAPAMIL HCL [Concomitant]
  9. FLUTICASONE/SALMETEROL (FLUTICASONE) [Concomitant]
  10. VENLAFAXINE HCL (VENLAFAXINE HYDROCHLORIDE) [Concomitant]

REACTIONS (4)
  - ARTHRALGIA [None]
  - HYPERSENSITIVITY [None]
  - MYALGIA [None]
  - VIRAL INFECTION [None]
